FAERS Safety Report 8294563 (Version 7)
Quarter: 2012Q4

REPORT INFORMATION
  Report Type: 
  Country: CA (occurrence: CA)
  Receive Date: 20111216
  Receipt Date: 20121011
  Transmission Date: 20130627
  Serious: Yes (Death, Hospitalization, Other)
  Sender: FDA-Public Use
  Company Number: PHHY2011CA96415

PATIENT
  Age: 49 Year
  Sex: Male

DRUGS (3)
  1. CLOZARIL [Suspect]
     Indication: SCHIZOPHRENIA
     Dates: start: 19961203
  2. CLOZARIL [Suspect]
     Route: 048
     Dates: start: 20111130
  3. CHEMOTHERAPEUTICS [Concomitant]
     Dosage: UNK

REACTIONS (13)
  - Neoplasm progression [Fatal]
  - Histiocytosis haematophagic [Unknown]
  - Petechiae [Unknown]
  - Pancytopenia [Unknown]
  - Pyrexia [Unknown]
  - Platelet count decreased [Unknown]
  - White blood cell count decreased [Unknown]
  - Infusion site infection [Unknown]
  - Abnormal behaviour [Unknown]
  - Communication disorder [Unknown]
  - Catatonia [Unknown]
  - Mental disorder [Unknown]
  - Agranulocytosis [Unknown]
